FAERS Safety Report 18701124 (Version 1)
Quarter: 2021Q1

REPORT INFORMATION
  Report Type: Spontaneous
  Country: US (occurrence: US)
  Receive Date: 20210104
  Receipt Date: 20210104
  Transmission Date: 20210419
  Serious: Yes (Disabling)
  Sender: FDA-Public Use
  Company Number: None

PATIENT
  Age: 14 Year
  Sex: Male
  Weight: 55.35 kg

DRUGS (24)
  1. DEXMETHYLPHENIDATE ER (FOCALIN XR) [Concomitant]
  2. DOXYCYCLINE. [Concomitant]
     Active Substance: DOXYCYCLINE
  3. METHYLPHENIDATE (RITALIN) [Concomitant]
  4. PINELLA [Concomitant]
  5. DEXMETHYLPHENIDATE [Suspect]
     Active Substance: DEXMETHYLPHENIDATE HYDROCHLORIDE
     Indication: PRODUCT USED FOR UNKNOWN INDICATION
     Route: 048
     Dates: start: 20201209, end: 20201215
  6. G.I. DETOX [Concomitant]
  7. COENZYME Q10 [Concomitant]
     Active Substance: DIETARY SUPPLEMENT\UBIDECARENONE
  8. GLUTATHIONE [Concomitant]
     Active Substance: GLUTATHIONE
  9. SACCHAROMYCIN [Concomitant]
  10. THER?BIOTIC COMPLETE PROBIOTICS KLAIRE LABS [Concomitant]
  11. ABILIFY [Concomitant]
     Active Substance: ARIPIPRAZOLE
  12. VITAMIN D [Concomitant]
     Active Substance: VITAMIN D NOS
  13. L?METHYLFOLATE [Concomitant]
     Active Substance: LEVOMEFOLIC ACID
  14. CLARITHROMYCIN. [Concomitant]
     Active Substance: CLARITHROMYCIN
  15. LAMISIL [Concomitant]
     Active Substance: TERBINAFINE HYDROCHLORIDE
  16. VITAMIN C [Concomitant]
     Active Substance: ASCORBIC ACID
  17. EFA (ESSENTIAL FATTY ACIDS) [Concomitant]
  18. MAGNESIUM TAURATE [Concomitant]
  19. ATOVAQUONE (MEPRON) [Concomitant]
  20. CEFDINIR. [Concomitant]
     Active Substance: CEFDINIR
  21. ZINC PICOLINATE (PURE ANCAPSULATIONS) [Concomitant]
  22. NORDIC NATURALS PROOMEGA) [Concomitant]
  23. 25B CFU [Concomitant]
  24. IRON EXTRA VITANICA [Concomitant]

REACTIONS (10)
  - Product quality issue [None]
  - Mood swings [None]
  - Fatigue [None]
  - Drug ineffective [None]
  - Headache [None]
  - Nausea [None]
  - Product substitution issue [None]
  - Withdrawal syndrome [None]
  - Disturbance in attention [None]
  - Educational problem [None]

NARRATIVE: CASE EVENT DATE: 20201209
